FAERS Safety Report 25997689 (Version 1)
Quarter: 2025Q4

REPORT INFORMATION
  Report Type: Report from Study
  Country: CA (occurrence: CA)
  Receive Date: 20251104
  Receipt Date: 20251104
  Transmission Date: 20260117
  Serious: Yes (Other)
  Sender: ABBVIE
  Company Number: CA-ABBVIE-6523611

PATIENT
  Age: 71 Year
  Sex: Male

DRUGS (5)
  1. RINVOQ [Suspect]
     Active Substance: UPADACITINIB
     Indication: Rheumatoid arthritis
     Dosage: STRENGTH- 15 MG
     Route: 048
  2. XOLAIR [Concomitant]
     Active Substance: OMALIZUMAB
     Indication: Product used for unknown indication
  3. APIXABAN [Concomitant]
     Active Substance: APIXABAN
     Indication: Atrial fibrillation
  4. MOMETASONE [Concomitant]
     Active Substance: MOMETASONE
     Indication: Product used for unknown indication
  5. CETIRIZINE [Concomitant]
     Active Substance: CETIRIZINE HYDROCHLORIDE
     Indication: Product used for unknown indication

REACTIONS (10)
  - Ischaemic neuropathy [Unknown]
  - Transient ischaemic attack [Unknown]
  - Hypotension [Unknown]
  - Arteriosclerosis [Unknown]
  - Balance disorder [Unknown]
  - Dizziness [Unknown]
  - Motor dysfunction [Unknown]
  - Cranial nerve disorder [Unknown]
  - Parkinsonism [Unknown]
  - Diplopia [Unknown]
